FAERS Safety Report 5852733-8 (Version None)
Quarter: 2008Q3

REPORT INFORMATION
  Report Type: 
  Country: None (occurrence: None)
  Receive Date: 20080819
  Receipt Date: 20080804
  Transmission Date: 20090109
  Serious: Yes (Other)
  Sender: FDA-Public Use
  Company Number: 100#08#2008-03902

PATIENT
  Age: 50 Year
  Sex: Female

DRUGS (2)
  1. WARFARIN SODIUM [Suspect]
     Indication: COAGULOPATHY
  2. WARFARIN SODIUM [Suspect]
     Indication: HEREDITARY DISORDER

REACTIONS (7)
  - DEVICE MIGRATION [None]
  - ERDHEIM-CHESTER DISEASE [None]
  - HAEMATOMA [None]
  - HAEMORRHAGIC CYST [None]
  - HYSTERECTOMY [None]
  - PAIN [None]
  - PSEUDOCYST [None]
